FAERS Safety Report 13914639 (Version 2)
Quarter: 2017Q3

REPORT INFORMATION
  Report Type: Report from Study
  Country: None (occurrence: CO)
  Receive Date: 20170828
  Receipt Date: 20170914
  Transmission Date: 20171127
  Serious: Yes (Death, Hospitalization)
  Sender: FDA-Public Use
  Company Number: CO-ABBVIE-17P-036-2085366-00

PATIENT
  Age: 57 Year
  Sex: Female

DRUGS (1)
  1. ZEMPLAR [Suspect]
     Active Substance: PARICALCITOL
     Indication: HYPERPARATHYROIDISM SECONDARY
     Dosage: POST DIALYSIS
     Route: 042
     Dates: start: 20170411, end: 20170613

REACTIONS (2)
  - Cerebral ischaemia [Not Recovered/Not Resolved]
  - Respiratory arrest [Fatal]

NARRATIVE: CASE EVENT DATE: 20170801
